APPROVED DRUG PRODUCT: LEVETIRACETAM
Active Ingredient: LEVETIRACETAM
Strength: 500MG
Dosage Form/Route: TABLET;ORAL
Application: A201293 | Product #002 | TE Code: AB
Applicant: CHARTWELL RX SCIENCES LLC
Approved: Jun 14, 2011 | RLD: No | RS: No | Type: RX